FAERS Safety Report 18097710 (Version 2)
Quarter: 2020Q3

REPORT INFORMATION
  Report Type: Report from Study
  Country: IT (occurrence: IT)
  Receive Date: 20200731
  Receipt Date: 20200806
  Transmission Date: 20201103
  Serious: Yes (Hospitalization)
  Sender: FDA-Public Use
  Company Number: IT-AMGEN-ITACT2020122177

PATIENT
  Age: 72 Year
  Sex: Male
  Weight: 79 kg

DRUGS (6)
  1. IRINOTECAN [Suspect]
     Active Substance: IRINOTECAN
     Indication: COLORECTAL CANCER METASTATIC
     Dosage: 351 MILLIGRAM, Q2WK
     Route: 042
     Dates: start: 20200714
  2. 5 FU [Suspect]
     Active Substance: FLUOROURACIL
     Indication: COLORECTAL CANCER METASTATIC
     Dosage: 780 MILLIGRAM, Q2WK
     Route: 040
     Dates: start: 20200714
  3. FOLINIC ACID [Suspect]
     Active Substance: LEUCOVORIN
     Indication: COLORECTAL CANCER METASTATIC
     Dosage: 390 MILLIGRAM, Q2WK
     Route: 042
     Dates: start: 20200714
  4. 5 FU [Suspect]
     Active Substance: FLUOROURACIL
     Dosage: 4680 MILLIGRAM, Q2WK
     Route: 042
     Dates: start: 20200714
  5. PANITUMUMAB [Suspect]
     Active Substance: PANITUMUMAB
     Indication: COLORECTAL CANCER METASTATIC
     Dosage: 475 MILLIGRAM, Q2WK
     Route: 042
     Dates: start: 20200714
  6. CARDIOASPIRIN [Concomitant]
     Active Substance: ASPIRIN
     Indication: AORTIC ANEURYSM
     Dosage: 100 MILLIGRAM, QD
     Route: 048
     Dates: start: 2015

REACTIONS (3)
  - Neutropenia [Recovered/Resolved]
  - Thrombocytopenia [Recovering/Resolving]
  - Anaemia [Recovering/Resolving]

NARRATIVE: CASE EVENT DATE: 20200724
